FAERS Safety Report 8581642-9 (Version None)
Quarter: 2012Q3

REPORT INFORMATION
  Report Type: 
  Country: None (occurrence: None)
  Receive Date: 20120801
  Receipt Date: 20120801
  Transmission Date: 20120928
  Serious: No
  Sender: FDA-Public Use
  Company Number: None

PATIENT
  Age: 26 Year
  Sex: Male
  Weight: 145 kg

DRUGS (1)
  1. ACYCLOVIR [Suspect]
     Indication: MENINGITIS VIRAL
     Dosage: 1450MG Q8H IV  ONE DOSE : 660MG Q8H IV ONE DOSE
     Route: 042
     Dates: start: 20120613, end: 20120613

REACTIONS (1)
  - RENAL FAILURE ACUTE [None]
